FAERS Safety Report 5016644-2 (Version None)
Quarter: 2006Q2

REPORT INFORMATION
  Report Type: 
  Country: None (occurrence: None)
  Receive Date: 20060526
  Receipt Date: 20060516
  Transmission Date: 20061013
  Serious: Yes (Other)
  Sender: FDA-Public Use
  Company Number: PHNU2006DE02022

PATIENT
  Sex: Male

DRUGS (3)
  1. SANDIMMUNE [Suspect]
     Indication: HEART TRANSPLANT
     Dosage: 150/0/175MG/DAY, ORAL
     Route: 048
     Dates: start: 19930101
  2. AMOXICILLIN TRIHYDRATE+POTASSIUM CLAVULANATE SANDOZ (NGX)(AMOXICILLIN, [Suspect]
  3. ALLOPURINOL [Suspect]

REACTIONS (18)
  - ARRHYTHMIA [None]
  - DIABETES MELLITUS [None]
  - DIABETIC NEPHROPATHY [None]
  - DISEASE RECURRENCE [None]
  - DRUG HYPERSENSITIVITY [None]
  - DRUG INTERACTION [None]
  - ERYSIPELAS [None]
  - GOITRE [None]
  - HEPATIC CONGESTION [None]
  - HYPERURICAEMIA [None]
  - HYPOGLYCAEMIA [None]
  - LYMPHOEDEMA [None]
  - LYMPHORRHOEA [None]
  - PAPILLOMA [None]
  - RENAL FAILURE [None]
  - RIGHT VENTRICULAR FAILURE [None]
  - SEPSIS [None]
  - ULCER [None]
